FAERS Safety Report 16241461 (Version 3)
Quarter: 2019Q3

REPORT INFORMATION
  Report Type: Spontaneous
  Country: US (occurrence: US)
  Receive Date: 20190426
  Receipt Date: 20190710
  Transmission Date: 20191004
  Serious: Yes (Hospitalization, Other)
  Sender: FDA-Public Use
  Company Number: US-BRISTOL-MYERS SQUIBB COMPANY-BMS-2019-038746

PATIENT
  Age: 56 Year
  Sex: Female
  Weight: 58.05 kg

DRUGS (6)
  1. TRAZODONE [Concomitant]
     Active Substance: TRAZODONE HYDROCHLORIDE
     Indication: SLEEP DISORDER
     Dosage: 50 MILLIGRAM TAKE TWO
     Route: 065
  2. OPDIVO [Suspect]
     Active Substance: NIVOLUMAB
     Indication: NON-SMALL CELL LUNG CANCER STAGE II
     Dosage: UNK
     Route: 042
     Dates: start: 20170724
  3. TRAMADOL. [Concomitant]
     Active Substance: TRAMADOL
     Indication: PAIN
     Dosage: 50 MILLIGRAM, Q4H
     Route: 065
  4. LEVOTHYROXINE. [Concomitant]
     Active Substance: LEVOTHYROXINE
     Indication: THYROID FUNCTION TEST ABNORMAL
     Dosage: 1 DOSAGE FORM
     Route: 065
  5. LORAZEPAM. [Concomitant]
     Active Substance: LORAZEPAM
     Indication: ANXIETY
     Dosage: 1/2 MG
     Route: 065
  6. YERVOY [Suspect]
     Active Substance: IPILIMUMAB
     Indication: NON-SMALL CELL LUNG CANCER STAGE II
     Dosage: UNK
     Route: 042
     Dates: start: 20170724

REACTIONS (16)
  - Decreased appetite [Unknown]
  - Blood urine present [Unknown]
  - Pain [Unknown]
  - Eye irritation [Unknown]
  - Malignant neoplasm progression [Unknown]
  - Asthenia [Unknown]
  - Scar [Unknown]
  - Hypersomnia [Unknown]
  - Fatigue [Unknown]
  - Product use in unapproved indication [Unknown]
  - Musculoskeletal pain [Unknown]
  - Skin burning sensation [Unknown]
  - Pruritus [Unknown]
  - Onychoclasis [Unknown]
  - Myalgia [Unknown]
  - Haemoptysis [Unknown]

NARRATIVE: CASE EVENT DATE: 20170825
